FAERS Safety Report 9904346 (Version 3)
Quarter: 2014Q1

REPORT INFORMATION
  Report Type: Spontaneous
  Country: US (occurrence: US)
  Receive Date: 20140218
  Receipt Date: 20140307
  Transmission Date: 20141002
  Serious: No
  Sender: FDA-Public Use
  Company Number: US-PFIZER INC-2014039876

PATIENT
  Age: 61 Year
  Sex: Male
  Weight: 123 kg

DRUGS (3)
  1. ZYVOX [Suspect]
     Dosage: 600 MG, 2X/DAY, (300 ML)
     Route: 042
     Dates: start: 20120919, end: 20121003
  2. ZYVOX [Suspect]
     Dosage: 100 MG/5ML, 600MG EVERY 12 HOURS
     Route: 048
  3. AZACTAM [Concomitant]
     Dosage: UNK

REACTIONS (2)
  - Thrombocytopenia [Recovering/Resolving]
  - Anaemia [Unknown]
